FAERS Safety Report 6016913-3 (Version None)
Quarter: 2008Q4

REPORT INFORMATION
  Report Type: 
  Country: None (occurrence: None)
  Receive Date: 20081219
  Receipt Date: 20081212
  Transmission Date: 20090506
  Serious: Yes (Death, Hospitalization, Other)
  Sender: FDA-Public Use
  Company Number: 2008US003388

PATIENT
  Age: 23 Year
  Sex: Female

DRUGS (1)
  1. PROGRAF [Suspect]
     Indication: LIVER TRANSPLANT

REACTIONS (12)
  - ASCITES [None]
  - CYST [None]
  - GENERAL PHYSICAL HEALTH DETERIORATION [None]
  - GRANULOMA [None]
  - HEPATITIS [None]
  - MULTI-ORGAN FAILURE [None]
  - NO THERAPEUTIC RESPONSE [None]
  - OEDEMATOUS PANCREATITIS [None]
  - PLEURAL EFFUSION [None]
  - PORTAL HYPERTENSION [None]
  - SPLEEN DISORDER [None]
  - TRICHOSPORON INFECTION [None]
